FAERS Safety Report 24653937 (Version 2)
Quarter: 2025Q3

REPORT INFORMATION
  Report Type: Report from Study
  Country: ZA (occurrence: ZA)
  Receive Date: 20241122
  Receipt Date: 20250803
  Transmission Date: 20251020
  Serious: Yes (Other)
  Sender: ALEXION PHARMACEUTICALS
  Company Number: ZA-AstraZeneca-CH-00747864A

PATIENT
  Age: 54 Year
  Sex: Female

DRUGS (7)
  1. BUDESONIDE\FORMOTEROL [Suspect]
     Active Substance: BUDESONIDE\FORMOTEROL
     Route: 065
  2. CINNARIZINE [Concomitant]
     Active Substance: CINNARIZINE
     Route: 065
  3. Adco Dol [Concomitant]
     Route: 065
  4. Sinucon [Concomitant]
     Route: 065
  5. Medazine [Concomitant]
     Route: 065
  6. Dicloflam [Concomitant]
     Route: 065
  7. Pyrocaps [Concomitant]
     Route: 065

REACTIONS (1)
  - Diabetes mellitus [Unknown]
